APPROVED DRUG PRODUCT: HYDELTRASOL
Active Ingredient: PREDNISOLONE SODIUM PHOSPHATE
Strength: EQ 0.25% PHOSPHATE
Dosage Form/Route: OINTMENT;OPHTHALMIC, OTIC
Application: N011028 | Product #001
Applicant: MERCK AND CO INC
Approved: Approved Prior to Jan 1, 1982 | RLD: No | RS: No | Type: DISCN